FAERS Safety Report 21105286 (Version 2)
Quarter: 2022Q3

REPORT INFORMATION
  Report Type: Other
  Country: US (occurrence: None)
  Receive Date: 20220720
  Receipt Date: 20220728
  Transmission Date: 20221027
  Serious: Yes (Hospitalization, Other)
  Sender: FDA-Public Use
  Company Number: US-ROCHE-3137516

PATIENT
  Sex: Female
  Weight: 102.15 kg

DRUGS (4)
  1. OCREVUS [Suspect]
     Active Substance: OCRELIZUMAB
     Indication: Multiple sclerosis
     Dosage: INFUSE 300MG DAY 1, THEN 300 MG DAY 15, INFUSE 600MG Q 6 MO; DATE OF TREATMENT : 01/DEC/2021; /MAY/2
     Route: 042
  2. METHENAMINE [Concomitant]
     Active Substance: METHENAMINE
  3. OMEPRAZOLE [Concomitant]
     Active Substance: OMEPRAZOLE
  4. LISINOPRIL [Concomitant]
     Active Substance: LISINOPRIL

REACTIONS (9)
  - Fall [Unknown]
  - Pelvic fracture [Unknown]
  - Multiple sclerosis [Unknown]
  - Hip fracture [Unknown]
  - Urinary tract infection [Recovered/Resolved]
  - Asthenia [Not Recovered/Not Resolved]
  - Memory impairment [Not Recovered/Not Resolved]
  - Mental impairment [Not Recovered/Not Resolved]
  - Influenza [Recovered/Resolved]
